FAERS Safety Report 10253132 (Version 1)
Quarter: 2014Q2

REPORT INFORMATION
  Report Type: Spontaneous
  Country: US (occurrence: US)
  Receive Date: 20140623
  Receipt Date: 20140623
  Transmission Date: 20141212
  Serious: Yes (Other)
  Sender: FDA-Public Use
  Company Number: US-GLAXOSMITHKLINE-A1077949A

PATIENT
  Age: 53 Year
  Sex: Male

DRUGS (1)
  1. LAMICTAL [Suspect]
     Indication: EPILEPSY
     Dosage: 100MG UNKNOWN
     Route: 065
     Dates: start: 199604

REACTIONS (3)
  - Convulsion [Unknown]
  - Brain operation [Recovered/Resolved]
  - Divorced [Unknown]
